FAERS Safety Report 4422896-X (Version None)
Quarter: 2004Q3

REPORT INFORMATION
  Report Type: 
  Country: None (occurrence: None)
  Receive Date: 20040811
  Receipt Date: 20040804
  Transmission Date: 20050211
  Serious: Yes (Other)
  Sender: FDA-Public Use
  Company Number: 200417766GDDC

PATIENT
  Age: 55 Year
  Sex: Female

DRUGS (4)
  1. ARAVA [Suspect]
     Indication: RHEUMATOID ARTHRITIS
     Dosage: DOSE: 5-10 (ALTERNATING DAYS)
     Route: 048
     Dates: start: 20030212, end: 20040730
  2. ACETAMINOPHEN [Concomitant]
     Dosage: DOSE: UNK
  3. GINKO BILOBA [Concomitant]
     Dosage: DOSE: UNK
  4. VITAMIN B COMPLEX CAP [Concomitant]
     Dosage: DOSE: UNK

REACTIONS (6)
  - DRY MOUTH [None]
  - DRY SKIN [None]
  - GLOSSODYNIA [None]
  - HEPATIC STEATOSIS [None]
  - NAIL DISORDER [None]
  - ONYCHORRHEXIS [None]
